FAERS Safety Report 5099416-2 (Version None)
Quarter: 2006Q3

REPORT INFORMATION
  Report Type: 
  Country: None (occurrence: None)
  Receive Date: 20060905
  Receipt Date: 20060905
  Transmission Date: 20061208
  Serious: Yes (Other)
  Sender: FDA-Public Use
  Company Number: None

PATIENT
  Age: 54 Year
  Sex: Male

DRUGS (1)
  1. TUBERCULIN PURFID PROTEIN DERIVATIVE (MANTOUX) TUBERSOL AVENTIS [Suspect]
     Dosage: INTRADERMA LFA
     Route: 023
     Dates: start: 20060526

REACTIONS (2)
  - PRURITUS [None]
  - URTICARIA [None]
